FAERS Safety Report 7419187-1 (Version None)
Quarter: 2011Q2

REPORT INFORMATION
  Report Type: 
  Country: None (occurrence: None)
  Receive Date: 20110415
  Receipt Date: 20110413
  Transmission Date: 20111010
  Serious: Yes (Death)
  Sender: FDA-Public Use
  Company Number: US-B.I. PHARMACEUTICALS,INC./RIDGEFIELD-2010-BP-14573BP

PATIENT
  Sex: Male

DRUGS (11)
  1. POTASSIUM CHLORIDE [Concomitant]
  2. LEVOTHYROXINE SODIUM [Concomitant]
  3. DIOVAN [Concomitant]
  4. PRADAXA [Suspect]
     Indication: HEART RATE IRREGULAR
  5. ATENOLOL [Concomitant]
  6. PRADAXA [Suspect]
     Indication: ATRIAL FIBRILLATION
     Dosage: 300 MG
     Route: 048
     Dates: start: 20101124
  7. FUROSEMIDE [Concomitant]
  8. TAMSULOSIN HCL [Concomitant]
  9. LOSARTAN [Concomitant]
  10. CLONIDINE HCL [Concomitant]
  11. SIMVASTATIN [Concomitant]

REACTIONS (2)
  - CONTUSION [None]
  - CEREBROVASCULAR ACCIDENT [None]
